FAERS Safety Report 23666840 (Version 1)
Quarter: 2024Q1

REPORT INFORMATION
  Report Type: Spontaneous
  Country: IN (occurrence: IN)
  Receive Date: 20240325
  Receipt Date: 20240325
  Transmission Date: 20240409
  Serious: No
  Sender: FDA-Public Use
  Company Number: IN-ALLERGAN-2141277US

PATIENT
  Age: 73 Year
  Sex: Female

DRUGS (1)
  1. BRIMONIDINE TARTRATE [Suspect]
     Active Substance: BRIMONIDINE TARTRATE
     Indication: Exfoliation glaucoma
     Route: 061

REACTIONS (7)
  - Choroidal haemorrhage [Unknown]
  - Corneal defect [Unknown]
  - Uveal prolapse [Unknown]
  - Dermatitis [Unknown]
  - Drug hypersensitivity [Unknown]
  - Eye haemorrhage [Unknown]
  - Eye discharge [Unknown]
